FAERS Safety Report 7620377-3 (Version None)
Quarter: 2011Q3

REPORT INFORMATION
  Report Type: 
  Country: None (occurrence: None)
  Receive Date: 20110718
  Receipt Date: 20110718
  Transmission Date: 20111222
  Serious: Yes (Other)
  Sender: FDA-Public Use
  Company Number: None

PATIENT
  Age: 47 Year
  Sex: Female
  Weight: 80.285 kg

DRUGS (2)
  1. BUPROPION HCL [Suspect]
     Indication: TACHYPHRENIA
     Dates: start: 20110707, end: 20110711
  2. BUPROPION HCL [Suspect]
     Indication: DEPRESSION
     Dates: start: 20110707, end: 20110711

REACTIONS (6)
  - ABNORMAL BEHAVIOUR [None]
  - STRESS [None]
  - DEPRESSION [None]
  - HEADACHE [None]
  - INSOMNIA [None]
  - ANGER [None]
